FAERS Safety Report 8545515-X (Version None)
Quarter: 2012Q3

REPORT INFORMATION
  Report Type: 
  Country: None (occurrence: None)
  Receive Date: 20120727
  Receipt Date: 20111031
  Transmission Date: 20120928
  Serious: No
  Sender: FDA-Public Use
  Company Number: US-ASTRAZENECA-2011SE65934

PATIENT
  Sex: Male

DRUGS (1)
  1. SEROQUEL [Suspect]
     Indication: BIPOLAR I DISORDER
     Route: 048

REACTIONS (5)
  - DRUG DOSE OMISSION [None]
  - MALAISE [None]
  - DECREASED INTEREST [None]
  - WEIGHT DECREASED [None]
  - BIPOLAR I DISORDER [None]
